FAERS Safety Report 20844750 (Version 1)
Quarter: 2022Q2

REPORT INFORMATION
  Report Type: Report from Study
  Country: US (occurrence: US)
  Receive Date: 20220518
  Receipt Date: 20220518
  Transmission Date: 20220721
  Serious: No
  Sender: FDA-Public Use
  Company Number: US-IGSA-BIG0018810

PATIENT
  Age: 60 Year
  Sex: Male
  Weight: 89.79 kg

DRUGS (6)
  1. GAMUNEX-C [Suspect]
     Active Substance: HUMAN IMMUNOGLOBULIN G
     Indication: Guillain-Barre syndrome
     Dosage: 5 GRAM, Q.4WK.
     Route: 042
  2. GAMUNEX-C [Suspect]
     Active Substance: HUMAN IMMUNOGLOBULIN G
     Indication: Off label use
     Dosage: 10 UNK
     Route: 042
  3. GAMUNEX-C [Suspect]
     Active Substance: HUMAN IMMUNOGLOBULIN G
     Dosage: UNK
     Route: 042
     Dates: start: 20190915
  4. GAMUNEX-C [Suspect]
     Active Substance: HUMAN IMMUNOGLOBULIN G
     Dosage: UNK
     Route: 042
     Dates: start: 202101
  5. DIPHENHYDRAMINE HYDROCHLORIDE [Concomitant]
     Active Substance: DIPHENHYDRAMINE HYDROCHLORIDE
     Indication: Premedication
  6. TYLENOL [Concomitant]
     Active Substance: ACETAMINOPHEN
     Indication: Premedication

REACTIONS (3)
  - Rash [Recovered/Resolved]
  - Pruritus [Recovering/Resolving]
  - Intentional dose omission [Unknown]

NARRATIVE: CASE EVENT DATE: 20210101
